FAERS Safety Report 9165689 (Version 1)
Quarter: 2013Q1

REPORT INFORMATION
  Report Type: Spontaneous
  Country: US (occurrence: None)
  Receive Date: 20130314
  Receipt Date: 20130314
  Transmission Date: 20140127
  Serious: No
  Sender: FDA-Public Use
  Company Number: None

PATIENT
  Age: 68 Year
  Sex: Female
  Weight: 59.42 kg

DRUGS (1)
  1. ACTONEL [Suspect]
     Indication: OSTEOPENIA
     Dosage: 1 TABLET, ONCE A MO.
     Dates: start: 20120207

REACTIONS (5)
  - Fatigue [None]
  - Asthenia [None]
  - Anxiety [None]
  - Depression [None]
  - Personality change [None]
